FAERS Safety Report 22318780 (Version 1)
Quarter: 2023Q2

REPORT INFORMATION
  Report Type: Report from Study
  Country: CA (occurrence: CA)
  Receive Date: 20230515
  Receipt Date: 20230515
  Transmission Date: 20230721
  Serious: Yes (Death, Other)
  Sender: FDA-Public Use
  Company Number: CA-MYLANLABS-2023M1047914

PATIENT
  Age: 54 Year
  Sex: Female

DRUGS (1)
  1. CLOZAPINE [Suspect]
     Active Substance: CLOZAPINE
     Indication: Schizoaffective disorder
     Dosage: 625 MILLIGRAM, QD, 125 MG EVERY MORNING AND 500 MG EVERY NIGHT AT BEDTIME
     Route: 065
     Dates: start: 201705

REACTIONS (2)
  - Small cell lung cancer [Fatal]
  - Off label use [Unknown]

NARRATIVE: CASE EVENT DATE: 20170501
